FAERS Safety Report 17822097 (Version 2)
Quarter: 2020Q2

REPORT INFORMATION
  Report Type: Spontaneous
  Country: CN (occurrence: CN)
  Receive Date: 20200526
  Receipt Date: 20200605
  Transmission Date: 20200714
  Serious: Yes (Hospitalization, Other)
  Sender: FDA-Public Use
  Company Number: NVSC2020CN141880

PATIENT

DRUGS (3)
  1. TRILEPTAL [Suspect]
     Active Substance: OXCARBAZEPINE
     Dosage: UNK
     Route: 048
     Dates: start: 201909
  2. TOPIRAMATE. [Concomitant]
     Active Substance: TOPIRAMATE
     Indication: EPILEPSY
     Dosage: 50 MG
     Route: 048
     Dates: start: 200901, end: 20191008
  3. TRILEPTAL [Suspect]
     Active Substance: OXCARBAZEPINE
     Indication: EPILEPSY
     Dosage: UNK
     Route: 048
     Dates: start: 201908

REACTIONS (9)
  - Chest discomfort [Unknown]
  - Pyrexia [Unknown]
  - Fumbling [Unknown]
  - Epilepsy [Unknown]
  - Hyperthyroidism [Unknown]
  - Confusional state [Unknown]
  - Partial seizures [Unknown]
  - Dysphagia [Unknown]
  - Aplastic anaemia [Unknown]

NARRATIVE: CASE EVENT DATE: 201911
